FAERS Safety Report 19247930 (Version 1)
Quarter: 2021Q2

REPORT INFORMATION
  Report Type: Spontaneous
  Country: US (occurrence: US)
  Receive Date: 20210512
  Receipt Date: 20210512
  Transmission Date: 20210717
  Serious: No
  Sender: FDA-Public Use
  Company Number: US-EMD SERONO-9235105

PATIENT
  Sex: Female

DRUGS (2)
  1. SEROSTIM [Suspect]
     Active Substance: SOMATROPIN
     Indication: CACHEXIA
     Route: 058
     Dates: start: 20191112
  2. SEROSTIM [Suspect]
     Active Substance: SOMATROPIN
     Indication: HIV INFECTION

REACTIONS (2)
  - Treatment noncompliance [Unknown]
  - Weight decreased [Unknown]
